FAERS Safety Report 10112348 (Version 1)
Quarter: 2014Q2

REPORT INFORMATION
  Report Type: Report from Study
  Country: US (occurrence: US)
  Receive Date: 20140425
  Receipt Date: 20140425
  Transmission Date: 20141212
  Serious: Yes (Hospitalization)
  Sender: FDA-Public Use
  Company Number: US-ABBVIE-14P-163-1226674-00

PATIENT
  Age: 70 Year
  Sex: Female

DRUGS (1)
  1. HUMIRA [Suspect]
     Indication: RHEUMATOID ARTHRITIS
     Dates: start: 2012, end: 201403

REACTIONS (8)
  - Renal failure acute [Recovered/Resolved]
  - Retching [Recovered/Resolved]
  - Sepsis [Recovering/Resolving]
  - Fall [Recovered/Resolved]
  - Diarrhoea [Recovered/Resolved]
  - Dehydration [Recovered/Resolved]
  - Fall [Recovered/Resolved]
  - Pancreatitis [Recovered/Resolved]
